FAERS Safety Report 7142191-8 (Version None)
Quarter: 2010Q4

REPORT INFORMATION
  Report Type: 
  Country: None (occurrence: None)
  Receive Date: 20101203
  Receipt Date: 20101203
  Transmission Date: 20110411
  Serious: Yes (Hospitalization, Other)
  Sender: FDA-Public Use
  Company Number: None

PATIENT
  Sex: Male
  Weight: 69.4 kg

DRUGS (2)
  1. MEROPENEM [Suspect]
     Indication: ABSCESS
     Dosage: 1400 MG Q8H IV BOLUS
     Dates: start: 20101004, end: 20101028
  2. MEROPENEM [Suspect]
     Indication: DECUBITUS ULCER
     Dosage: 1400 MG Q8H IV BOLUS
     Dates: start: 20101004, end: 20101028

REACTIONS (4)
  - COUGH [None]
  - HYPERHIDROSIS [None]
  - NEUTROPENIA [None]
  - PYREXIA [None]
